FAERS Safety Report 13871057 (Version 1)
Quarter: 2017Q3

REPORT INFORMATION
  Report Type: Spontaneous
  Country: IN (occurrence: IN)
  Receive Date: 20170816
  Receipt Date: 20170816
  Transmission Date: 20171127
  Serious: Yes (Other)
  Sender: FDA-Public Use
  Company Number: IN-HETERO-2017HINLIT0637

PATIENT
  Age: 22 Year
  Sex: Male

DRUGS (4)
  1. ILOPERIDONE. [Suspect]
     Active Substance: ILOPERIDONE
     Indication: SCHIZOPHRENIA
     Dosage: 8 MG, QD
     Route: 065
  2. ILOPERIDONE. [Suspect]
     Active Substance: ILOPERIDONE
     Dosage: 12 MG, QD
     Route: 065
  3. CLOZAPINE. [Suspect]
     Active Substance: CLOZAPINE
     Indication: SCHIZOPHRENIA
     Dosage: 300 MG, QD
     Route: 065
  4. ARIPIPRAZOLE. [Suspect]
     Active Substance: ARIPIPRAZOLE
     Indication: SCHIZOPHRENIA
     Dosage: 30 MG, QD
     Route: 065

REACTIONS (5)
  - Withdrawal syndrome [Recovering/Resolving]
  - Psychotic disorder [Recovering/Resolving]
  - Delusion of grandeur [Recovering/Resolving]
  - Sedation [Recovering/Resolving]
  - Constipation [Recovering/Resolving]
